FAERS Safety Report 24653295 (Version 1)
Quarter: 2024Q4

REPORT INFORMATION
  Report Type: Other
  Country: ES (occurrence: ES)
  Receive Date: 20241122
  Receipt Date: 20241122
  Transmission Date: 20250114
  Serious: Yes (Other)
  Sender: DUCHESNAY
  Company Number: ES-AEMPS-1591101

PATIENT

DRUGS (2)
  1. OSPHENA [Suspect]
     Active Substance: OSPEMIFENE
     Indication: Uterine prolapse
     Dosage: 60 MILLIGRAM, QD
     Route: 048
     Dates: start: 20240320, end: 20240426
  2. METAMIZOL SODIUM [Suspect]
     Active Substance: METAMIZOL SODIUM
     Indication: Back pain
     Dosage: 575 MILLIGRAM, QD
     Route: 048
     Dates: start: 20230915, end: 20240515

REACTIONS (2)
  - Hepatocellular injury [Recovered/Resolved]
  - Hyperbilirubinaemia [Recovered/Resolved]

NARRATIVE: CASE EVENT DATE: 20240416
